FAERS Safety Report 16477216 (Version 1)
Quarter: 2019Q2

REPORT INFORMATION
  Report Type: Report from Study
  Country: CA (occurrence: CA)
  Receive Date: 20190626
  Receipt Date: 20190626
  Transmission Date: 20190711
  Serious: No
  Sender: FDA-Public Use
  Company Number: CA-BEH-2018087157

PATIENT
  Age: 7 Year
  Sex: Female

DRUGS (7)
  1. HIZENTRA [Suspect]
     Active Substance: HUMAN IMMUNOGLOBULIN G
     Indication: PRIMARY IMMUNODEFICIENCY SYNDROME
     Dosage: 4 G, QW
     Route: 058
     Dates: start: 20160909
  2. HIZENTRA [Suspect]
     Active Substance: HUMAN IMMUNOGLOBULIN G
     Dosage: 4 G, TOT
     Route: 058
     Dates: start: 20180527, end: 20180527
  3. RITUXIMAB. [Concomitant]
     Active Substance: RITUXIMAB
     Dosage: EVERY 3-5 MONTHS
     Route: 042
  4. HIZENTRA [Suspect]
     Active Substance: HUMAN IMMUNOGLOBULIN G
     Dosage: 4 G, TOT
     Route: 058
     Dates: start: 20180422, end: 20180422
  5. BENADRYL [Concomitant]
     Active Substance: DIPHENHYDRAMINE HYDROCHLORIDE
     Indication: PREMEDICATION
  6. HIZENTRA [Suspect]
     Active Substance: HUMAN IMMUNOGLOBULIN G
     Indication: NEPHROTIC SYNDROME
     Dosage: 4 G, TOT
     Route: 058
  7. BENADRYL [Concomitant]
     Active Substance: DIPHENHYDRAMINE HYDROCHLORIDE
     Indication: PREMEDICATION

REACTIONS (16)
  - Injection site erythema [Unknown]
  - Injection site pustule [Unknown]
  - Infusion site pain [Not Recovered/Not Resolved]
  - Pruritus [Recovered/Resolved with Sequelae]
  - No adverse event [Unknown]
  - Pruritus [Unknown]
  - Infusion site erythema [Not Recovered/Not Resolved]
  - Blister [Not Recovered/Not Resolved]
  - Sensitive skin [Not Recovered/Not Resolved]
  - Infusion site bruising [Not Recovered/Not Resolved]
  - Fear of injection [Unknown]
  - Erythema [Unknown]
  - Erythema [Recovered/Resolved with Sequelae]
  - Product use in unapproved indication [Unknown]
  - Adverse drug reaction [Not Recovered/Not Resolved]
  - Infusion site mass [Recovered/Resolved]

NARRATIVE: CASE EVENT DATE: 2018
